FAERS Safety Report 10055412 (Version 1)
Quarter: 2014Q2

REPORT INFORMATION
  Report Type: Spontaneous
  Country: US (occurrence: US)
  Receive Date: 20140403
  Receipt Date: 20140403
  Transmission Date: 20141212
  Serious: No
  Sender: FDA-Public Use
  Company Number: US-BIOGENIDEC-2014BI030407

PATIENT
  Age: 53 Year
  Sex: Female

DRUGS (4)
  1. AVONEX [Suspect]
     Indication: MULTIPLE SCLEROSIS
     Route: 030
     Dates: start: 20110329
  2. CRANBERRY CONCENTRATE [Concomitant]
  3. DYAZIDE [Concomitant]
  4. FOLIC ACID [Concomitant]

REACTIONS (1)
  - Cataract [Not Recovered/Not Resolved]
